FAERS Safety Report 18163245 (Version 1)
Quarter: 2020Q3

REPORT INFORMATION
  Report Type: Report from Study
  Country: US (occurrence: US)
  Receive Date: 20200818
  Receipt Date: 20200818
  Transmission Date: 20201103
  Serious: Yes (Hospitalization)
  Sender: FDA-Public Use
  Company Number: US-GILEAD-2020-0490707

PATIENT
  Age: 44 Year
  Sex: Female

DRUGS (12)
  1. FOLIC ACID. [Concomitant]
     Active Substance: FOLIC ACID
  2. AMBRISENTAN [Suspect]
     Active Substance: AMBRISENTAN
     Indication: PORTAL HYPERTENSION
     Dosage: 10 MG, QD
     Route: 065
     Dates: start: 20180622
  3. BUPROPION. [Concomitant]
     Active Substance: BUPROPION
  4. FUROSEMIDE. [Concomitant]
     Active Substance: FUROSEMIDE
  5. NADOLOL. [Concomitant]
     Active Substance: NADOLOL
  6. POTASSIUM CHLORIDE. [Concomitant]
     Active Substance: POTASSIUM CHLORIDE
  7. SILDENAFIL. [Concomitant]
     Active Substance: SILDENAFIL
  8. SPIRONOLACT [Concomitant]
     Active Substance: SPIRONOLACTONE
  9. XIFAXAN [Concomitant]
     Active Substance: RIFAXIMIN
  10. PANTOPRAZOLE [Concomitant]
     Active Substance: PANTOPRAZOLE
  11. LACTULOSE. [Concomitant]
     Active Substance: LACTULOSE
  12. LORAZEPAM. [Concomitant]
     Active Substance: LORAZEPAM

REACTIONS (2)
  - Product dose omission issue [Unknown]
  - Bacterial infection [Not Recovered/Not Resolved]

NARRATIVE: CASE EVENT DATE: 20200701
